FAERS Safety Report 8379994-8 (Version None)
Quarter: 2012Q2

REPORT INFORMATION
  Report Type: 
  Country: None (occurrence: None)
  Receive Date: 20120523
  Receipt Date: 20120518
  Transmission Date: 20120825
  Serious: Yes (Hospitalization)
  Sender: FDA-Public Use
  Company Number: US-PURDUE-USA-2012-0086610

PATIENT
  Sex: Female
  Weight: 69.4 kg

DRUGS (22)
  1. HYDROMORPHONE HCL [Concomitant]
     Indication: PAIN
  2. DOCUSATE SODIUM [Concomitant]
     Indication: CONSTIPATION
  3. DOCUSATE [Concomitant]
     Indication: CONSTIPATION
  4. IBUPROFEN [Concomitant]
     Indication: PAIN
  5. OXYCODONE HCL [Suspect]
     Dosage: 50 MG, BID
     Route: 048
     Dates: start: 20120427, end: 20120503
  6. CEFTRIAXONE SODIUM [Concomitant]
     Indication: PYREXIA
     Dosage: 2000 MG, UNK
  7. HYDROXYZINE [Concomitant]
     Indication: PRURITUS
  8. KETOROLAC TROMETHAMINE [Concomitant]
     Indication: PAIN
  9. NALBUPHINE [Concomitant]
     Indication: PRURITUS
  10. NAPROXEN [Concomitant]
     Indication: PAIN
  11. PENICILLIN [Concomitant]
     Indication: INFECTION PROPHYLAXIS
  12. HYDROCODONE BITARTRATE AND ACETAMINOPHEN [Concomitant]
     Indication: PAIN
  13. DIPHENHYDRAMINE                    /00000402/ [Concomitant]
     Indication: PRURITUS
  14. SENNA                              /00142201/ [Concomitant]
     Indication: CONSTIPATION
  15. OXYCODONE HCL [Suspect]
     Indication: PAIN
     Dosage: 40 MG, BID
     Route: 048
     Dates: start: 20120420, end: 20120427
  16. ONDANSETRON [Concomitant]
     Indication: NAUSEA
  17. OXYCODONE HCL [Concomitant]
     Indication: PAIN
  18. NALOXONE [Concomitant]
     Indication: PRURITUS
  19. AMITRIPTYLENE [Concomitant]
     Indication: HEADACHE
  20. POLYETHYLENE GLYCOL [Concomitant]
     Indication: CONSTIPATION
  21. OXYCODONE HCL [Concomitant]
     Indication: PAIN
  22. LORAZEPAM [Concomitant]
     Indication: NAUSEA

REACTIONS (1)
  - STATUS MIGRAINOSUS [None]
